FAERS Safety Report 9726555 (Version 1)
Quarter: 2013Q4

REPORT INFORMATION
  Report Type: Spontaneous
  Country: CA (occurrence: CA)
  Receive Date: 20131203
  Receipt Date: 20131203
  Transmission Date: 20140711
  Serious: Yes (Other)
  Sender: FDA-Public Use
  Company Number: CA-GLAXOSMITHKLINE-A1051470A

PATIENT
  Age: 60 Year
  Sex: Female

DRUGS (12)
  1. TYKERB [Suspect]
     Indication: PRODUCT USED FOR UNKNOWN INDICATION
     Dosage: 1250MG PER DAY
     Route: 048
  2. WARFARIN [Suspect]
     Indication: PRODUCT USED FOR UNKNOWN INDICATION
     Route: 048
  3. WARFARIN [Suspect]
     Indication: PRODUCT USED FOR UNKNOWN INDICATION
     Route: 048
  4. XELODA [Suspect]
     Indication: PRODUCT USED FOR UNKNOWN INDICATION
     Route: 048
  5. DIGOXIN [Concomitant]
  6. HYDROMORPH CONTIN [Concomitant]
  7. LYRICA [Concomitant]
  8. METOCLOPRAMIDE [Concomitant]
  9. METOPROLOL [Concomitant]
  10. OMEPRAZOLE [Concomitant]
  11. PAROXETINE [Concomitant]
  12. SENOKOT S [Concomitant]

REACTIONS (5)
  - Back pain [Recovered/Resolved]
  - Diarrhoea [Unknown]
  - International normalised ratio increased [Unknown]
  - Rash [Unknown]
  - Vomiting [Unknown]
